FAERS Safety Report 21341312 (Version 2)
Quarter: 2022Q4

REPORT INFORMATION
  Report Type: Spontaneous
  Country: IT (occurrence: IT)
  Receive Date: 20220916
  Receipt Date: 20221012
  Transmission Date: 20230113
  Serious: Yes (Hospitalization, Other)
  Sender: FDA-Public Use
  Company Number: IT-SUN PHARMACEUTICAL INDUSTRIES LTD-2022RR-354765

PATIENT
  Age: 55 Year
  Sex: Male
  Weight: 110 kg

DRUGS (3)
  1. SUMATRIPTAN [Interacting]
     Active Substance: SUMATRIPTAN
     Indication: Migraine
     Dosage: 6 MILLIGRAM
     Route: 058
  2. AIMOVIG [Interacting]
     Active Substance: ERENUMAB-AOOE
     Indication: Migraine
     Dosage: 70 MILLIGRAM, UNK
     Route: 065
  3. AIMOVIG [Interacting]
     Active Substance: ERENUMAB-AOOE
     Dosage: 140 MILLIGRAM, UNK
     Route: 065

REACTIONS (3)
  - Acute myocardial infarction [Recovered/Resolved]
  - Atrial fibrillation [Recovered/Resolved]
  - Drug interaction [Unknown]
